FAERS Safety Report 9965101 (Version 1)
Quarter: 2014Q1

REPORT INFORMATION
  Report Type: Report from Study
  Country: US (occurrence: US)
  Receive Date: 20140305
  Receipt Date: 20140305
  Transmission Date: 20141002
  Serious: No
  Sender: FDA-Public Use
  Company Number: US-ABBVIE-13P-163-1124240-00

PATIENT
  Age: 49 Year
  Sex: Female
  Weight: 127.12 kg

DRUGS (4)
  1. HUMIRA [Suspect]
     Indication: RHEUMATOID ARTHRITIS
     Dates: start: 200712, end: 20130629
  2. METHOTREXATE [Concomitant]
     Indication: RHEUMATOID ARTHRITIS
  3. LORTAB [Concomitant]
     Indication: PAIN
  4. LISINOPRIL [Concomitant]
     Indication: HYPERTENSION

REACTIONS (1)
  - Joint stiffness [Not Recovered/Not Resolved]
